FAERS Safety Report 18241111 (Version 3)
Quarter: 2020Q3

REPORT INFORMATION
  Report Type: Spontaneous
  Country: JP (occurrence: JP)
  Receive Date: 20200908
  Receipt Date: 20200923
  Transmission Date: 20201103
  Serious: Yes (Hospitalization, Other)
  Sender: FDA-Public Use
  Company Number: JP-BRISTOL-MYERS SQUIBB COMPANY-BMS-2020-072750

PATIENT
  Age: 71 Year
  Sex: Female
  Weight: 34 kg

DRUGS (5)
  1. GOLIMUMAB [Suspect]
     Active Substance: GOLIMUMAB
     Indication: COLITIS ULCERATIVE
     Dosage: UNK
     Route: 058
  2. GOLIMUMAB [Suspect]
     Active Substance: GOLIMUMAB
     Indication: RHEUMATOID ARTHRITIS
  3. PREDNISOLONE. [Suspect]
     Active Substance: PREDNISOLONE
     Indication: STRONGYLOIDIASIS
     Dosage: 20 MILLIGRAM, QD, FOR 8 WEEKS
     Route: 048
     Dates: start: 2016, end: 2016
  4. PREDNISOLONE. [Suspect]
     Active Substance: PREDNISOLONE
     Indication: RHEUMATOID ARTHRITIS
     Dosage: 7 MILLIGRAM, QD; LOW DOSE FOR 5 YEARS
     Route: 048
     Dates: start: 1995, end: 2016
  5. ABATACEPT [Suspect]
     Active Substance: ABATACEPT
     Indication: RHEUMATOID ARTHRITIS
     Dosage: UNK
     Route: 065

REACTIONS (3)
  - Strongyloidiasis [Recovered/Resolved]
  - Parasitic gastroenteritis [Unknown]
  - Human T-cell lymphotropic virus type I infection [Recovered/Resolved]

NARRATIVE: CASE EVENT DATE: 201512
